FAERS Safety Report 8677363 (Version 2)
Quarter: 2014Q1

REPORT INFORMATION
  Report Type: Report from Study
  Country: FR (occurrence: FR)
  Receive Date: 20120723
  Receipt Date: 20140321
  Transmission Date: 20141002
  Serious: Yes (Hospitalization, Other)
  Sender: FDA-Public Use
  Company Number: PHHY2012FR061861

PATIENT
  Age: 77 Year
  Sex: Female
  Weight: 76 kg

DRUGS (16)
  1. ACLASTA/ZOLEDRONATE [Suspect]
     Indication: OSTEOPOROSIS
     Dosage: UNK
     Route: 042
     Dates: start: 201105
  2. ACLASTA/ZOLEDRONATE [Suspect]
     Dosage: UNK
     Route: 042
     Dates: start: 201205
  3. KARDEGIC [Concomitant]
     Dosage: UNK
  4. CARDENSIEL [Concomitant]
     Dosage: UNK
  5. TAHOR [Concomitant]
     Dosage: UNK
  6. LASILIX [Concomitant]
     Dosage: UNK
  7. LEVOTHYROX [Concomitant]
     Dosage: UNK
  8. LANTUS [Concomitant]
     Dosage: UNK
  9. NOVORAPID [Concomitant]
  10. PLAVIX [Concomitant]
     Dosage: UNK
     Dates: start: 2011, end: 201206
  11. KALEORID [Concomitant]
     Dates: start: 2011, end: 2012
  12. ESOMEPRAZOLE [Concomitant]
  13. BREXINE [Concomitant]
     Dates: start: 2013
  14. COLTRAMYL [Concomitant]
     Dosage: UNK
     Dates: start: 2013
  15. OXYNORM [Concomitant]
     Dosage: UNK
     Dates: start: 2013
  16. OXYCONTIN [Concomitant]
     Dosage: UNK
     Dates: start: 2013, end: 201312

REACTIONS (22)
  - Hyperglycaemia [Unknown]
  - Acetonaemia [Unknown]
  - Fractured sacrum [Unknown]
  - Gastroenteritis radiation [Unknown]
  - Diarrhoea [Unknown]
  - Endometrial adenocarcinoma [Recovering/Resolving]
  - Lymphadenopathy [Unknown]
  - Neoplasm malignant [Unknown]
  - Haemorrhage [Unknown]
  - Myelodysplastic syndrome [Unknown]
  - Anaemia macrocytic [Unknown]
  - Pancytopenia [Unknown]
  - Diabetic neuropathy [Unknown]
  - Arterial occlusive disease [Unknown]
  - Pyelonephritis [Unknown]
  - Pelvic fracture [Unknown]
  - Kidney infection [Unknown]
  - Acute abdomen [Unknown]
  - Ketosis [Unknown]
  - Soft tissue disorder [Recovering/Resolving]
  - Pathological fracture [Recovering/Resolving]
  - Oedema peripheral [Unknown]
